FAERS Safety Report 6256450-4 (Version None)
Quarter: 2009Q2

REPORT INFORMATION
  Report Type: 
  Country: None (occurrence: None)
  Receive Date: 20090630
  Receipt Date: 20090630
  Transmission Date: 20091009
  Serious: Yes (Hospitalization)
  Sender: FDA-Public Use
  Company Number: None

PATIENT
  Age: 54 Year
  Sex: Female
  Weight: 102.9665 kg

DRUGS (1)
  1. LISINOPRIL AND HYDROCHLOROTHIAZIDE [Suspect]
     Indication: HYPERTENSION
     Dosage: 1 TABLET DAILY
     Dates: start: 20081201, end: 20090608

REACTIONS (4)
  - BLOOD PRESSURE INCREASED [None]
  - OBSTRUCTIVE AIRWAYS DISORDER [None]
  - SPEECH DISORDER [None]
  - SWOLLEN TONGUE [None]
